FAERS Safety Report 5422104-7 (Version None)
Quarter: 2007Q3

REPORT INFORMATION
  Report Type: 
  Country: None (occurrence: None)
  Receive Date: 20070821
  Receipt Date: 20070821
  Transmission Date: 20080115
  Serious: Yes (Life-Threatening, Disabling)
  Sender: FDA-Public Use
  Company Number: None

PATIENT
  Sex: Male

DRUGS (1)
  1. ROBITUSSIN [Suspect]

REACTIONS (2)
  - INTENTIONAL DRUG MISUSE [None]
  - OPIATES POSITIVE [None]
